FAERS Safety Report 16702979 (Version 2)
Quarter: 2019Q3

REPORT INFORMATION
  Report Type: Spontaneous
  Country: US (occurrence: US)
  Receive Date: 20190814
  Receipt Date: 20190913
  Transmission Date: 20191004
  Serious: No
  Sender: FDA-Public Use
  Company Number: US-ASTRAZENECA-2019SF04022

PATIENT
  Age: 34 Year
  Sex: Female
  Weight: 110.4 kg

DRUGS (11)
  1. ADVAIR HFA [Concomitant]
     Active Substance: FLUTICASONE PROPIONATE\SALMETEROL XINAFOATE
     Dosage: 230-21 MCG, 2 PUFFS TWICE DAILY WITH SPACER
     Route: 055
     Dates: start: 20190131
  2. PROAIR HFA [Concomitant]
     Active Substance: ALBUTEROL SULFATE
     Indication: WHEEZING
     Dosage: 2 PUFFS EVERY 4-6 HOURS
     Route: 055
     Dates: start: 20190131
  3. LORATADINE. [Concomitant]
     Active Substance: LORATADINE
     Indication: SNEEZING
     Route: 048
     Dates: start: 20190131
  4. LORATADINE. [Concomitant]
     Active Substance: LORATADINE
     Indication: PRURITUS
     Route: 048
     Dates: start: 20190131
  5. EPIPEN [Concomitant]
     Active Substance: EPINEPHRINE
     Indication: HYPERSENSITIVITY
     Dosage: INJECT IM TO OUSIDE THIGH X3 SEC PRN
     Route: 030
     Dates: start: 20190131
  6. SPIRIVA RESPIMAT [Concomitant]
     Active Substance: TIOTROPIUM BROMIDE
     Dosage: 1.25UG UNKNOWN
     Dates: start: 20190228
  7. PROAIR HFA [Concomitant]
     Active Substance: ALBUTEROL SULFATE
     Indication: COUGH
     Dosage: 2 PUFFS EVERY 4-6 HOURS
     Route: 055
     Dates: start: 20190131
  8. FASENRA [Suspect]
     Active Substance: BENRALIZUMAB
     Indication: ASTHMA
     Dosage: 1 SUBCUTANEOUS INJECTION EVERY 4 WEEKS FOR THE FIRST 3 DOSES FOLLOWED BY ONCE EVERY 8 WEEKS THERE...
     Route: 058
     Dates: start: 20190516
  9. KETOTIFEN FUMARATE. [Concomitant]
     Active Substance: KETOTIFEN FUMARATE
     Dosage: 1 TO 2 DROPS PER EYE TWICE DAIY
     Dates: start: 20190131
  10. LORATADINE. [Concomitant]
     Active Substance: LORATADINE
     Indication: RHINORRHOEA
     Route: 048
     Dates: start: 20190131
  11. ALBUTEROL SULFATE. [Concomitant]
     Active Substance: ALBUTEROL SULFATE
     Dosage: VIA NEBULIZER EVERY 4-6 HOURS AS NEEDED UP TO 4 TIMES DAILY3.0ML UNKNOWN
     Dates: start: 20190228

REACTIONS (5)
  - Skin plaque [Recovered/Resolved]
  - Pruritus [Recovered/Resolved]
  - Erythema [Recovered/Resolved]
  - Rash erythematous [Recovered/Resolved]
  - Skin burning sensation [Recovered/Resolved]

NARRATIVE: CASE EVENT DATE: 20190627
